FAERS Safety Report 4948670-3 (Version None)
Quarter: 2006Q1

REPORT INFORMATION
  Report Type: 
  Country: None (occurrence: None)
  Receive Date: 20060313
  Receipt Date: 20060301
  Transmission Date: 20060701
  Serious: Yes (Other)
  Sender: FDA-Public Use
  Company Number: 2006026065

PATIENT
  Age: 65 Year
  Sex: Female

DRUGS (3)
  1. AROMASIN [Suspect]
     Indication: BREAST CANCER FEMALE
     Dosage: ORAL
     Route: 048
     Dates: start: 20050331
  2. METOPROLOL SUCCINATE [Concomitant]
  3. DOLORMIN (IBUPROFEN LYSINATE) [Concomitant]

REACTIONS (1)
  - OESOPHAGEAL STENOSIS [None]
